FAERS Safety Report 10142507 (Version 1)
Quarter: 2014Q2

REPORT INFORMATION
  Report Type: Report from Study
  Country: NL (occurrence: NL)
  Receive Date: 20140430
  Receipt Date: 20140430
  Transmission Date: 20141212
  Serious: Yes (Hospitalization)
  Sender: FDA-Public Use
  Company Number: NL-ROCHE-1388922

PATIENT
  Age: 72 Year
  Sex: Male
  Weight: 75.5 kg

DRUGS (5)
  1. BEVACIZUMAB [Suspect]
     Indication: GASTRIC CANCER
     Dosage: LAST DOSE PRIOR TO SAE ON 26/SEP/2013
     Route: 042
     Dates: start: 20130515
  2. CAPECITABINE [Suspect]
     Indication: GASTRIC CANCER
     Dosage: DAY 1-14; LAST DOSE PRIOR TO SAE ON 26/SEP/2013
     Route: 048
     Dates: start: 20130515
  3. DOCETAXEL [Suspect]
     Indication: GASTRIC CANCER
     Dosage: LAST DOSE PRIOR TO SAE ON 26/SEP/2013
     Route: 042
     Dates: start: 20130515
  4. OXALIPLATIN [Suspect]
     Indication: GASTRIC CANCER
     Dosage: LAST DOSE PRIOR TO SAE ON 26/SEP/2013
     Route: 042
     Dates: start: 20130515
  5. FLUCONAZOLE [Concomitant]
     Route: 065
     Dates: start: 20131004, end: 20131007

REACTIONS (2)
  - Glossodynia [Recovered/Resolved]
  - Febrile neutropenia [Recovered/Resolved]
